FAERS Safety Report 18501547 (Version 2)
Quarter: 2020Q4

REPORT INFORMATION
  Report Type: Report from Study
  Country: US (occurrence: US)
  Receive Date: 20201113
  Receipt Date: 20201217
  Transmission Date: 20210114
  Serious: Yes (Death, Hospitalization, Other)
  Sender: FDA-Public Use
  Company Number: US-ADAMAS PHARMA, LLC-2020ADA02339

PATIENT
  Age: 80 Year
  Sex: Female

DRUGS (12)
  1. ROSUVASTATIN. [Concomitant]
     Active Substance: ROSUVASTATIN
  2. CITALOPRAM [Concomitant]
     Active Substance: CITALOPRAM HYDROBROMIDE
  3. DILTIAZEM. [Concomitant]
     Active Substance: DILTIAZEM
  4. PANTOPRAZOLE [Concomitant]
     Active Substance: PANTOPRAZOLE
  5. RYTARY [Concomitant]
     Active Substance: CARBIDOPA\LEVODOPA
  6. MONTELUKAST [Concomitant]
     Active Substance: MONTELUKAST SODIUM
  7. BYSTOLIC [Concomitant]
     Active Substance: NEBIVOLOL HYDROCHLORIDE
  8. JANUVIA [Concomitant]
     Active Substance: SITAGLIPTIN PHOSPHATE
  9. TOVIAZ [Concomitant]
     Active Substance: FESOTERODINE FUMARATE
  10. GOCOVRI [Suspect]
     Active Substance: AMANTADINE
     Indication: DYSKINESIA
     Dosage: 274 MG, 1X/DAY AT BEDTIME
     Route: 048
     Dates: start: 20190214, end: 202009
  11. AMANTADINE. [Concomitant]
     Active Substance: AMANTADINE HYDROCHLORIDE
  12. CARBIDOPA/LEVODOPA [Concomitant]
     Active Substance: CARBIDOPA\LEVODOPA

REACTIONS (5)
  - Urosepsis [Unknown]
  - Hospice care [Not Recovered/Not Resolved]
  - Pneumonia aspiration [Unknown]
  - Death [Fatal]
  - Acute respiratory failure [Unknown]

NARRATIVE: CASE EVENT DATE: 20200916
